FAERS Safety Report 17179910 (Version 1)
Quarter: 2019Q4

REPORT INFORMATION
  Report Type: Spontaneous
  Country: DE (occurrence: DE)
  Receive Date: 20191219
  Receipt Date: 20191219
  Transmission Date: 20200122
  Serious: Yes (Hospitalization, Other)
  Sender: FDA-Public Use
  Company Number: DE-PFIZER INC-2019544862

PATIENT
  Age: 79 Year
  Sex: Female
  Weight: 78 kg

DRUGS (9)
  1. ACETYLSALICYLIC ACID [Concomitant]
     Active Substance: ASPIRIN
     Dosage: 100 MG, 1X/DAY (1-0-0-0)
  2. PANTOPRAZOL [Concomitant]
     Active Substance: PANTOPRAZOLE SODIUM
     Dosage: 40 MG, 1X/DAY (1-0-0-0)
  3. LEVOTHYROXINE SODIUM. [Concomitant]
     Active Substance: LEVOTHYROXINE SODIUM
     Dosage: 50 UG, 1X/DAY (1-0-0-0)
  4. ROTIGOTINE [Suspect]
     Active Substance: ROTIGOTINE
     Dosage: 3 MG, 1X/DAY (1-0-0-0)
  5. TORASEMIDE [Suspect]
     Active Substance: TORSEMIDE
     Dosage: 10 MG, 1X/DAY (1-0-0-0)
  6. METOPROLOL. [Suspect]
     Active Substance: METOPROLOL
     Dosage: 47.5 MG, 1X/DAY (1-0-0-0)
  7. NITROLINGUAL [Concomitant]
     Active Substance: NITROGLYCERIN
     Dosage: UNK, AS NEEDED (NK MG IF REQUIRED)
  8. RAMIPRIL. [Suspect]
     Active Substance: RAMIPRIL
     Dosage: 5 MG, 2X/DAY (1-0-0-1)
  9. KALIUM [POTASSIUM] [Concomitant]
     Dosage: UNK, 1X/DAY (1-0-0-0)

REACTIONS (3)
  - Orthostatic intolerance [Unknown]
  - Syncope [Unknown]
  - Dyspnoea [Unknown]
